FAERS Safety Report 17840382 (Version 1)
Quarter: 2020Q2

REPORT INFORMATION
  Report Type: Spontaneous
  Country: PL (occurrence: PL)
  Receive Date: 20200529
  Receipt Date: 20200529
  Transmission Date: 20200714
  Serious: Yes (Other)
  Sender: FDA-Public Use
  Company Number: PL-MYLANLABS-2020M1051908

PATIENT
  Age: 69 Year
  Sex: Male

DRUGS (11)
  1. LEVODOPA [Interacting]
     Active Substance: LEVODOPA
     Indication: PRODUCT USED FOR UNKNOWN INDICATION
     Dosage: UNK
     Route: 005
  2. MADOPAR HBS [Interacting]
     Active Substance: BENSERAZIDE HYDROCHLORIDE\LEVODOPA
     Dosage: LEVODOPA 200 MG, BENSERAZIDE 50 MG EVERY 6 HOURS (INCLUDING ONE DOSE IN A FASTING)
  3. ANAPRAN                            /00256201/ [Concomitant]
     Dosage: UNK
  4. POLPIX [Concomitant]
     Dosage: UNK
  5. POLTRAM COMBO [Concomitant]
     Active Substance: ACETAMINOPHEN\TRAMADOL HYDROCHLORIDE
     Dosage: UNK
  6. AKINETON [Concomitant]
     Active Substance: BIPERIDEN HYDROCHLORIDE
     Dosage: UNK
  7. KALIPOZ [Concomitant]
     Active Substance: POTASSIUM CHLORIDE
     Dosage: UNK
  8. TAMSULOSIN [Suspect]
     Active Substance: TAMSULOSIN
     Indication: PRODUCT USED FOR UNKNOWN INDICATION
     Dosage: 0.4 MILLIGRAM, QD
     Route: 065
  9. MADOPAR HBS [Interacting]
     Active Substance: BENSERAZIDE HYDROCHLORIDE\LEVODOPA
     Indication: PARKINSON^S DISEASE
     Dosage: LEVODOPA 100 MG, BENSERAZIDE 25 MG THRICE DAILY (WITH A MEAL)
  10. MADOPAR HBS [Interacting]
     Active Substance: BENSERAZIDE HYDROCHLORIDE\LEVODOPA
     Dosage: LEVODOPA 50 MG, BENSERAZIDE 12.5 MG THRICE DAILY (WITH A MEAL)
  11. ASAMAX [Concomitant]
     Active Substance: MESALAMINE
     Dosage: UNK

REACTIONS (2)
  - Drug interaction [Unknown]
  - Orthostatic hypotension [Unknown]
